FAERS Safety Report 8326814-3 (Version None)
Quarter: 2012Q2

REPORT INFORMATION
  Report Type: 
  Country: None (occurrence: None)
  Receive Date: 20120430
  Receipt Date: 20120426
  Transmission Date: 20120825
  Serious: Yes (Hospitalization)
  Sender: FDA-Public Use
  Company Number: ADR-2012-00091

PATIENT
  Age: 17 Year
  Sex: Male

DRUGS (1)
  1. LIORESAL [Suspect]

REACTIONS (6)
  - ANISOCYTOSIS [None]
  - HYPOCHROMASIA [None]
  - PLATELET MORPHOLOGY ABNORMAL [None]
  - IMPLANT SITE SWELLING [None]
  - PSEUDOMENINGOCELE [None]
  - CEREBRAL VENTRICLE DILATATION [None]
